FAERS Safety Report 7701530-7 (Version None)
Quarter: 2011Q3

REPORT INFORMATION
  Report Type: 
  Country: None (occurrence: None)
  Receive Date: 20110822
  Receipt Date: 20101018
  Transmission Date: 20111222
  Serious: No
  Sender: FDA-Public Use
  Company Number: US-BAYER-201040049NA

PATIENT
  Age: 52 Year
  Sex: Female

DRUGS (2)
  1. ANGELIQ [Suspect]
     Dosage: 1.0 MG, UNK
     Dates: start: 20101015
  2. ANGELIQ [Suspect]
     Indication: ATROPHIC VULVOVAGINITIS
     Dosage: 0.5 MG, UNK

REACTIONS (1)
  - ABDOMINAL PAIN [None]
